FAERS Safety Report 9014610 (Version 3)
Quarter: 2013Q2

REPORT INFORMATION
  Report Type: Report from Study
  Country: None (occurrence: US)
  Receive Date: 20130115
  Receipt Date: 20130425
  Transmission Date: 20140414
  Serious: Yes (Congenital Anomaly, Other)
  Sender: FDA-Public Use
  Company Number: US-TEVA-331919USA

PATIENT
  Age: 0 Year
  Sex: Male
  Weight: 2.86 kg

DRUGS (4)
  1. PROVIGIL [Suspect]
     Route: 064
  2. NUVIGIL [Suspect]
     Route: 065
  3. PRENATAL VITAMINS [Concomitant]
     Route: 065
  4. ALLEGRA-D [Concomitant]
     Route: 065

REACTIONS (7)
  - Torticollis [Unknown]
  - Eyelid ptosis [Unknown]
  - Cafe au lait spots [Unknown]
  - Live birth [Unknown]
  - Plagiocephaly [Unknown]
  - Xanthogranuloma [Unknown]
  - Neurofibromatosis [Unknown]
